FAERS Safety Report 6462075-8 (Version None)
Quarter: 2009Q4

REPORT INFORMATION
  Report Type: 
  Country: None (occurrence: None)
  Receive Date: 20091123
  Receipt Date: 20091117
  Transmission Date: 20100525
  Serious: Yes (Death)
  Sender: FDA-Public Use
  Company Number: 2009S1000099

PATIENT
  Sex: Male

DRUGS (1)
  1. INOMAX [Suspect]
     Indication: HYPOXIA
     Dosage: 20 PPM; CONT; INH
     Route: 055
     Dates: start: 20091116, end: 20091116

REACTIONS (3)
  - GENERAL PHYSICAL HEALTH DETERIORATION [None]
  - OXYGEN SATURATION DECREASED [None]
  - RESPIRATORY DISORDER NEONATAL [None]
